FAERS Safety Report 7366900-8 (Version None)
Quarter: 2011Q1

REPORT INFORMATION
  Report Type: 
  Country: None (occurrence: None)
  Receive Date: 20110322
  Receipt Date: 20110314
  Transmission Date: 20110831
  Serious: Yes (Other)
  Sender: FDA-Public Use
  Company Number: B0699018A

PATIENT
  Sex: Female

DRUGS (1)
  1. SEROXAT [Suspect]
     Indication: DEPRESSION
     Dosage: 20MG PER DAY
     Route: 067
     Dates: start: 20100101

REACTIONS (3)
  - ABORTION MISSED [None]
  - VAGINAL HAEMORRHAGE [None]
  - DRUG EXPOSURE DURING PREGNANCY [None]
